FAERS Safety Report 5638494-6 (Version None)
Quarter: 2008Q1

REPORT INFORMATION
  Report Type: 
  Country: None (occurrence: None)
  Receive Date: 20080226
  Receipt Date: 20070129
  Transmission Date: 20080703
  Serious: No
  Sender: FDA-Public Use
  Company Number: A0637394A

PATIENT
  Age: 42 Year

DRUGS (5)
  1. IMITREX [Suspect]
     Indication: MIGRAINE
     Dosage: 6MG ALTERNATE DAYS
     Route: 058
     Dates: start: 20070128
  2. NAPROXEN SODIUM [Concomitant]
  3. ZYRTEC [Concomitant]
  4. SINGULAIR [Concomitant]
  5. NASACORT [Concomitant]

REACTIONS (5)
  - CONTUSION [None]
  - DRUG INEFFECTIVE [None]
  - INJECTION SITE PAIN [None]
  - INJECTION SITE WARMTH [None]
  - PHARMACEUTICAL PRODUCT COMPLAINT [None]
